FAERS Safety Report 8992248 (Version 1)
Quarter: 2012Q4

REPORT INFORMATION
  Report Type: 
  Country: ES (occurrence: ES)
  Receive Date: 20121231
  Receipt Date: 20121231
  Transmission Date: 20130627
  Serious: Yes (Hospitalization)
  Sender: FDA-Public Use
  Company Number: ES-ELI_LILLY_AND_COMPANY-ES201206002826

PATIENT
  Age: 76 None
  Sex: Female

DRUGS (1)
  1. FORSTEO [Suspect]
     Indication: OSTEOPOROSIS
     Dosage: 20 u, qd
     Route: 058
     Dates: start: 20110208

REACTIONS (5)
  - Loss of consciousness [Unknown]
  - Renal colic [Unknown]
  - Blood uric acid increased [Unknown]
  - Urinary tract infection [Unknown]
  - Dehydration [Unknown]
